FAERS Safety Report 9322881 (Version 2)
Quarter: 2013Q2

REPORT INFORMATION
  Report Type: Report from Study
  Country: MX (occurrence: MX)
  Receive Date: 20130602
  Receipt Date: 20130619
  Transmission Date: 20140414
  Serious: Yes (Death, Disabling)
  Sender: FDA-Public Use
  Company Number: MX-ROCHE-1231474

PATIENT
  Age: 55 Year
  Sex: Female

DRUGS (1)
  1. XELODA [Suspect]
     Indication: COLORECTAL CANCER
     Route: 065

REACTIONS (5)
  - Disease progression [Fatal]
  - Fatigue [Unknown]
  - Nausea [Unknown]
  - Immune system disorder [Unknown]
  - Speech disorder [Unknown]
